FAERS Safety Report 24666015 (Version 1)
Quarter: 2024Q4

REPORT INFORMATION
  Report Type: Report from Study
  Country: NL (occurrence: NL)
  Receive Date: 20241126
  Receipt Date: 20241126
  Transmission Date: 20250115
  Serious: Yes (Other)
  Sender: ABBVIE
  Company Number: NL-ABBVIE-6015382

PATIENT
  Age: 78 Year
  Sex: Male

DRUGS (5)
  1. CARBIDOPA\LEVODOPA [Suspect]
     Active Substance: CARBIDOPA\LEVODOPA
     Indication: Parkinson^s disease
     Dosage: GOES TO 24 HOURS
     Route: 058
     Dates: start: 20240724
  2. CARBIDOPA\LEVODOPA [Suspect]
     Active Substance: CARBIDOPA\LEVODOPA
     Dosage: LD: 1.80 ML, BIR: 0.27ML/H, ED: 0.10ML; REMAINS AT 24 HOURS
     Route: 058
     Dates: start: 20241118, end: 20241119
  3. CARBIDOPA\LEVODOPA [Suspect]
     Active Substance: CARBIDOPA\LEVODOPA
     Dosage: LD:1.80ML, BIR: 0.42 ML/H, HIR: 0.42 ML/H, LIR: 0.30 ML/H, ED: 0.15 ML; REMAINS AT 24 HOURS
     Route: 058
     Dates: start: 20241119, end: 20241120
  4. CARBIDOPA\LEVODOPA [Suspect]
     Active Substance: CARBIDOPA\LEVODOPA
     Dosage: LD:1.80ML, BIR: 0.42 ML/H, HIR: 0.42 ML/H, LIR: 0.30 ML/H, ED: 0.15 ML
     Route: 058
     Dates: start: 20241120
  5. CARBIDOPA\LEVODOPA [Concomitant]
     Active Substance: CARBIDOPA\LEVODOPA
     Indication: Parkinson^s disease
     Dosage: STRENGTH: 250 MG, 2 TIMES DAILY AT 7 AM AND 11 AM.?STRENGTH: 125 MG, 2 TIMES DAILY 3 PM AND 7.30 PM
     Dates: start: 20191002, end: 20241118

REACTIONS (16)
  - Stent placement [Not Recovered/Not Resolved]
  - Stress [Not Recovered/Not Resolved]
  - Angina pectoris [Not Recovered/Not Resolved]
  - Tremor [Not Recovered/Not Resolved]
  - Fatigue [Not Recovered/Not Resolved]
  - Restlessness [Not Recovered/Not Resolved]
  - Middle insomnia [Recovered/Resolved]
  - Gait disturbance [Recovered/Resolved]
  - Bradykinesia [Not Recovered/Not Resolved]
  - Gait disturbance [Recovering/Resolving]
  - Bradykinesia [Not Recovered/Not Resolved]
  - Unevaluable event [Not Recovered/Not Resolved]
  - Poor quality sleep [Not Recovered/Not Resolved]
  - Infusion site papule [Not Recovered/Not Resolved]
  - Movement disorder [Recovered/Resolved]
  - Malaise [Recovered/Resolved]

NARRATIVE: CASE EVENT DATE: 20240901
